FAERS Safety Report 8405888-5 (Version None)
Quarter: 2012Q2

REPORT INFORMATION
  Report Type: 
  Country: None (occurrence: None)
  Receive Date: 20120529
  Receipt Date: 20060124
  Transmission Date: 20120825
  Serious: Yes (Hospitalization)
  Sender: FDA-Public Use
  Company Number: 15691-USA-06-0269

PATIENT
  Age: 49 Year
  Sex: Male

DRUGS (10)
  1. CARVEDILOL [Concomitant]
  2. FOSINOPRIL SODIUM [Concomitant]
  3. FUROSEMIDE [Concomitant]
  4. ACIDI ACTACRINCI (ACETYLSALICYLIC ACID) [Concomitant]
  5. TOLVAPTAN (TOLVAPTAN(V4.1)) 30MG [Suspect]
     Indication: CARDIAC FAILURE CONGESTIVE
     Dosage: 30 MG, QD, ORAL
     Route: 048
     Dates: start: 20050824, end: 20060122
  6. TOLVAPTAN (TOLVAPTAN(V4.1)) 30MG [Suspect]
     Indication: CARDIAC FAILURE CONGESTIVE
     Dosage: 30 MG, QD, ORAL
     Route: 048
     Dates: start: 20060203
  7. HYDROCHLOROTHIAZIDE [Concomitant]
  8. DIGOXIN [Concomitant]
  9. ASPIRIN [Concomitant]
  10. MAGNESIUM W/POTASSIUM (MAGNESIUM, POTASSIUM) [Concomitant]

REACTIONS (6)
  - CONDITION AGGRAVATED [None]
  - TACHYCARDIA [None]
  - CYANOSIS [None]
  - DRUG INEFFECTIVE [None]
  - HEPATOMEGALY [None]
  - CARDIAC FAILURE [None]
